FAERS Safety Report 7833045-X (Version None)
Quarter: 2011Q4

REPORT INFORMATION
  Report Type: 
  Country: None (occurrence: None)
  Receive Date: 20111024
  Receipt Date: 20111011
  Transmission Date: 20120403
  Serious: Yes (Hospitalization, Other)
  Sender: FDA-Public Use
  Company Number: TW-JNJFOC-20111006946

PATIENT
  Age: 48 Year
  Sex: Male
  Weight: 61.2 kg

DRUGS (12)
  1. MORPHINE [Suspect]
     Indication: FLANK PAIN
     Route: 065
  2. MORPHINE [Suspect]
     Indication: BACK PAIN
     Route: 065
  3. FENTANYL-100 [Suspect]
     Route: 062
  4. FENTANYL-100 [Suspect]
     Indication: BACK PAIN
     Route: 062
  5. MORPHINE [Suspect]
     Route: 065
  6. MORPHINE [Suspect]
     Route: 065
  7. MORPHINE [Suspect]
     Route: 065
  8. MORPHINE [Suspect]
     Route: 065
  9. MORPHINE [Suspect]
     Indication: FLANK PAIN
     Route: 065
  10. FENTANYL-100 [Suspect]
     Indication: FLANK PAIN
     Route: 062
  11. MORPHINE [Suspect]
     Indication: BACK PAIN
     Route: 065
  12. FENTANYL-100 [Suspect]
     Route: 062

REACTIONS (7)
  - MIOSIS [None]
  - RESPIRATORY DEPRESSION [None]
  - DIZZINESS [None]
  - HYPERSOMNIA [None]
  - VOMITING [None]
  - OVERDOSE [None]
  - PAIN [None]
